FAERS Safety Report 15533073 (Version 1)
Quarter: 2018Q4

REPORT INFORMATION
  Report Type: Spontaneous
  Country: GB (occurrence: GB)
  Receive Date: 20181019
  Receipt Date: 20181019
  Transmission Date: 20190205
  Serious: Yes (Other)
  Sender: FDA-Public Use
  Company Number: GB-MYLANLABS-2018M1077879

PATIENT
  Age: 86 Year
  Sex: Male

DRUGS (1)
  1. AMLODIPINE [Suspect]
     Active Substance: AMLODIPINE BESYLATE
     Indication: PROSTATE CANCER
     Dosage: 5 MG, UNK
     Route: 065

REACTIONS (2)
  - Prostatic specific antigen increased [Unknown]
  - Product use in unapproved indication [Unknown]
